FAERS Safety Report 8140101-8 (Version None)
Quarter: 2012Q1

REPORT INFORMATION
  Report Type: 
  Country: None (occurrence: None)
  Receive Date: 20120216
  Receipt Date: 20120203
  Transmission Date: 20120608
  Serious: Yes (Other)
  Sender: FDA-Public Use
  Company Number: BR-AMGEN-BRASP2012008347

PATIENT
  Age: 17 Year
  Sex: Female
  Weight: 72 kg

DRUGS (2)
  1. ENBREL [Suspect]
     Indication: JUVENILE ARTHRITIS
     Dosage: 50 MG, WEEKLY
     Dates: start: 20100412
  2. ARAVA [Concomitant]
     Dosage: UNK
     Dates: start: 20070101

REACTIONS (5)
  - ANAEMIA [None]
  - INJECTION SITE PAIN [None]
  - FLUID RETENTION [None]
  - ARTHROPATHY [None]
  - CELLULITIS [None]
